FAERS Safety Report 25884551 (Version 1)
Quarter: 2025Q4

REPORT INFORMATION
  Report Type: Spontaneous
  Country: US (occurrence: US)
  Receive Date: 20251006
  Receipt Date: 20251006
  Transmission Date: 20260118
  Serious: No
  Sender: RANBAXY
  Company Number: US-SUN PHARMACEUTICAL INDUSTRIES LTD-2024R1-466745

PATIENT
  Sex: Female

DRUGS (2)
  1. CEQUA [Suspect]
     Active Substance: CYCLOSPORINE
     Indication: Dry eye
     Dosage: UNK UNK, BID
     Route: 047
     Dates: start: 20240108
  2. CEQUA [Suspect]
     Active Substance: CYCLOSPORINE
     Dosage: UNK, QD
     Route: 047

REACTIONS (3)
  - Instillation site irritation [Unknown]
  - Off label use [Unknown]
  - Therapy cessation [Unknown]
